FAERS Safety Report 8588935-X (Version None)
Quarter: 2012Q3

REPORT INFORMATION
  Report Type: 
  Country: None (occurrence: None)
  Receive Date: 20120813
  Receipt Date: 20120801
  Transmission Date: 20120928
  Serious: Yes (Hospitalization, Other)
  Sender: FDA-Public Use
  Company Number: US-NOVOPROD-356311

PATIENT
  Age: 76 Year
  Sex: Male
  Weight: 97.4 kg

DRUGS (1)
  1. VICTOZA [Suspect]
     Indication: TYPE 2 DIABETES MELLITUS
     Dosage: 0 MG, QD
     Route: 058
     Dates: start: 20110719, end: 20120130

REACTIONS (2)
  - PANCREATITIS [None]
  - GALLBLADDER DISORDER [None]
